FAERS Safety Report 10185032 (Version 2)
Quarter: 2014Q3

REPORT INFORMATION
  Report Type: Spontaneous
  Country: US (occurrence: US)
  Receive Date: 20140521
  Receipt Date: 20140812
  Transmission Date: 20150326
  Serious: Yes (Hospitalization)
  Sender: FDA-Public Use
  Company Number: US-BAYER-2014-075302

PATIENT
  Age: 16 Year
  Sex: Female
  Weight: 104.31 kg

DRUGS (8)
  1. CLINDAMYCIN [Concomitant]
     Active Substance: CLINDAMYCIN\CLINDAMYCIN PHOSPHATE
     Dosage: UNK UNK, BID
     Route: 048
  2. YASMIN [Suspect]
     Active Substance: DROSPIRENONE\ETHINYL ESTRADIOL
  3. FLU [Concomitant]
     Active Substance: INFLUENZA VIRUS VACCINE
  4. NYSTOP [Concomitant]
     Active Substance: NYSTATIN
     Dosage: UNK UNK, BID
     Route: 061
  5. TRIMETHOPRIM SULFATE [Concomitant]
     Active Substance: TRIMETHOPRIM SULFATE
     Dosage: UNK
     Dates: start: 20070105
  6. AZITHROMYCIN [Concomitant]
     Active Substance: AZITHROMYCIN ANHYDROUS
     Dosage: UNK
     Dates: start: 20070108
  7. VANTIN [Concomitant]
     Active Substance: CEFPODOXIME PROXETIL
     Dosage: 400 MG, BID FOR 10 DAYS
     Route: 048
  8. IBUPROFEN. [Concomitant]
     Active Substance: IBUPROFEN
     Indication: PAIN IN EXTREMITY

REACTIONS (3)
  - Pulmonary embolism [None]
  - Pelvic venous thrombosis [None]
  - Deep vein thrombosis [None]

NARRATIVE: CASE EVENT DATE: 20070309
